FAERS Safety Report 5187329-7 (Version None)
Quarter: 2006Q4

REPORT INFORMATION
  Report Type: 
  Country: None (occurrence: None)
  Receive Date: 20061214
  Receipt Date: 20061201
  Transmission Date: 20070319
  Serious: Yes (Hospitalization)
  Sender: FDA-Public Use
  Company Number: 2006149403

PATIENT
  Age: 22 Year
  Sex: Female

DRUGS (3)
  1. DOSTINEX [Suspect]
     Indication: PROLACTINOMA
     Dosage: (0.5 MG, 1 IN 1 WK), ORAL
     Route: 048
     Dates: end: 20060207
  2. COMBIVIR [Concomitant]
  3. REYATAZ [Concomitant]

REACTIONS (3)
  - ABORTION SPONTANEOUS [None]
  - DRUG EXPOSURE DURING PREGNANCY [None]
  - PREGNANCY [None]
